FAERS Safety Report 10189439 (Version 2)
Quarter: 2014Q2

REPORT INFORMATION
  Report Type: Spontaneous
  Country: US (occurrence: US)
  Receive Date: 20140522
  Receipt Date: 20140522
  Transmission Date: 20141212
  Serious: No
  Sender: FDA-Public Use
  Company Number: US-ASTRAZENECA-2013SE65447

PATIENT
  Age: 59 Year
  Sex: Male
  Weight: 81.6 kg

DRUGS (1)
  1. PULMICORT FLEXHALER [Suspect]
     Indication: ASTHMA
     Dosage: 180 MCG, ONE PUFF TWO TIMES A DAY
     Route: 055
     Dates: start: 2006

REACTIONS (6)
  - Dyspnoea [Recovered/Resolved]
  - Condition aggravated [Unknown]
  - Adverse event [Recovered/Resolved]
  - Intentional product misuse [Unknown]
  - Off label use [Unknown]
  - Drug dose omission [Unknown]
